FAERS Safety Report 9417219 (Version 1)
Quarter: 2013Q3

REPORT INFORMATION
  Report Type: Spontaneous
  Country: US (occurrence: None)
  Receive Date: 20130722
  Receipt Date: 20130722
  Transmission Date: 20140515
  Serious: Yes (Death)
  Sender: FDA-Public Use
  Company Number: None

PATIENT
  Sex: Female

DRUGS (1)
  1. SULINDAC [Suspect]
     Indication: ARTHRALGIA

REACTIONS (5)
  - Pancytopenia [None]
  - Rash [None]
  - Rash [None]
  - Blister [None]
  - Mucosal inflammation [None]
